FAERS Safety Report 18897974 (Version 2)
Quarter: 2021Q2

REPORT INFORMATION
  Report Type: Spontaneous
  Country: US (occurrence: US)
  Receive Date: 20210216
  Receipt Date: 20210517
  Transmission Date: 20210717
  Serious: No
  Sender: FDA-Public Use
  Company Number: US-CELLTRION INC.-2021US001390

PATIENT

DRUGS (1)
  1. TRUXIMA [Suspect]
     Active Substance: RITUXIMAB-ABBS
     Indication: FOCAL SEGMENTAL GLOMERULOSCLEROSIS
     Dosage: 500 MG FREQUENCY X1
     Route: 065
     Dates: start: 20210201

REACTIONS (1)
  - Off label use [Unknown]
